FAERS Safety Report 4364011-7 (Version None)
Quarter: 2004Q2

REPORT INFORMATION
  Report Type: 
  Country: None (occurrence: None)
  Receive Date: 20040513
  Receipt Date: 20040426
  Transmission Date: 20050107
  Serious: Yes (Other)
  Sender: FDA-Public Use
  Company Number: THYM-10121

PATIENT
  Age: 55 Year
  Sex: Female

DRUGS (8)
  1. THYMOGLOBULIN [Suspect]
     Indication: PROPHYLAXIS AGAINST TRANSPLANT REJECTION
     Dosage: 2.5 MG/KG QD
  2. CLADRIBINE [Concomitant]
  3. BUSULFAN [Concomitant]
  4. CYCLOSPORINE [Concomitant]
  5. CIRPOFLOXACIN [Concomitant]
  6. FLUCONAZOLE [Concomitant]
  7. ACYCLOVIR [Concomitant]
  8. ANTIINFECTIVES [Concomitant]

REACTIONS (2)
  - BONE MARROW DEPRESSION [None]
  - GRAFT DYSFUNCTION [None]
